FAERS Safety Report 4789794-3 (Version None)
Quarter: 2005Q4

REPORT INFORMATION
  Report Type: 
  Country: None (occurrence: None)
  Receive Date: 20051006
  Receipt Date: 20050816
  Transmission Date: 20060501
  Serious: Yes (Hospitalization)
  Sender: FDA-Public Use
  Company Number: FR-GLAXOSMITHKLINE-B0390941A

PATIENT
  Age: 71 Year
  Sex: Male

DRUGS (6)
  1. AUGMENTIN '125' [Suspect]
     Dosage: 1G THREE TIMES PER DAY
     Route: 048
     Dates: start: 20050201
  2. ANTIBIOTIC (UNKNOWN NAME) [Concomitant]
     Dates: start: 20050201
  3. KERLONE [Concomitant]
  4. KARDEGIC [Concomitant]
  5. TAHOR [Concomitant]
  6. OGAST [Concomitant]

REACTIONS (6)
  - ANOREXIA [None]
  - APHTHOUS STOMATITIS [None]
  - ASTHENIA [None]
  - GASTROINTESTINAL FUNGAL INFECTION [None]
  - GENERAL PHYSICAL HEALTH DETERIORATION [None]
  - WEIGHT DECREASED [None]
